FAERS Safety Report 22245153 (Version 1)
Quarter: 2023Q2

REPORT INFORMATION
  Report Type: Other
  Country: FR (occurrence: FR)
  Receive Date: 20230424
  Receipt Date: 20230424
  Transmission Date: 20230721
  Serious: Yes (Death, Hospitalization, Other)
  Sender: FDA-Public Use
  Company Number: None

PATIENT
  Age: 33 Year
  Sex: Male
  Weight: 97 kg

DRUGS (2)
  1. IBUPROFEN [Suspect]
     Active Substance: IBUPROFEN
     Indication: Poisoning deliberate
     Dosage: 7 BOXES
     Route: 048
     Dates: start: 20230306, end: 20230306
  2. ACETAMINOPHEN [Suspect]
     Active Substance: ACETAMINOPHEN
     Indication: Poisoning deliberate
     Dosage: 6 BOXES
     Route: 048
     Dates: start: 20230306, end: 20230306

REACTIONS (8)
  - Hepatitis fulminant [Fatal]
  - Haematemesis [None]
  - Colitis [None]
  - Cholecystitis [None]
  - Cholangitis [None]
  - Dyspepsia [None]
  - Acute kidney injury [None]
  - Off label use [Unknown]

NARRATIVE: CASE EVENT DATE: 20230306
